FAERS Safety Report 4383392-1 (Version None)
Quarter: 2004Q2

REPORT INFORMATION
  Report Type: 
  Country: None (occurrence: None)
  Receive Date: 20040618
  Receipt Date: 20040610
  Transmission Date: 20050107
  Serious: Yes (Death)
  Sender: FDA-Public Use
  Company Number: 04H-062-0263427-00

PATIENT

DRUGS (1)
  1. HEPARIN SODIUM [Suspect]
     Dosage: SUBCUTANEOUS
     Route: 058

REACTIONS (2)
  - ABDOMINAL HAEMATOMA [None]
  - RETROPERITONEAL HAEMATOMA [None]
